FAERS Safety Report 11419398 (Version 1)
Quarter: 2015Q3

REPORT INFORMATION
  Report Type: Spontaneous
  Country: US (occurrence: US)
  Receive Date: 20150826
  Receipt Date: 20150826
  Transmission Date: 20151125
  Serious: Yes (Other)
  Sender: FDA-Public Use
  Company Number: US-BAYER-2015-408086

PATIENT
  Sex: Female

DRUGS (1)
  1. MIRENA [Suspect]
     Active Substance: LEVONORGESTREL
     Dosage: 20 MCG/24HR, CONT
     Route: 015
     Dates: start: 20080718, end: 20090818

REACTIONS (5)
  - Intra-uterine contraceptive device removal [None]
  - Emotional distress [None]
  - Device difficult to use [None]
  - Injury [None]
  - Pelvic pain [None]

NARRATIVE: CASE EVENT DATE: 20090818
